FAERS Safety Report 25632852 (Version 1)
Quarter: 2025Q3

REPORT INFORMATION
  Report Type: Spontaneous
  Country: US (occurrence: US)
  Receive Date: 20250801
  Receipt Date: 20250801
  Transmission Date: 20251020
  Serious: Yes (Life-Threatening, Hospitalization)
  Sender: B. BRAUN MEDICAL INC.
  Company Number: None

PATIENT
  Age: 67 Year
  Sex: Female

DRUGS (6)
  1. POTASSIUM [Suspect]
     Active Substance: POTASSIUM
  2. CARVEDILOL [Suspect]
     Active Substance: CARVEDILOL
  3. SPIRONOLACTONE [Suspect]
     Active Substance: SPIRONOLACTONE
  4. ERTUGLIFLOZIN [Concomitant]
     Active Substance: ERTUGLIFLOZIN
  5. FUROSEMIDE [Concomitant]
     Active Substance: FUROSEMIDE
  6. EMPAGLIFLOZIN [Concomitant]
     Active Substance: EMPAGLIFLOZIN

REACTIONS (1)
  - BRASH syndrome [Unknown]
